FAERS Safety Report 8303862 (Version 4)
Quarter: 2013Q2

REPORT INFORMATION
  Report Type: Spontaneous
  Country: US (occurrence: US)
  Receive Date: 20111221
  Receipt Date: 20130611
  Transmission Date: 20140414
  Serious: Yes (Hospitalization)
  Sender: FDA-Public Use
  Company Number: US-BAYER-2011-119965

PATIENT
  Age: 30 Year
  Sex: Female
  Weight: 58.5 kg

DRUGS (8)
  1. OCELLA [Suspect]
     Indication: CONTRACEPTION
     Dosage: UNK
     Dates: start: 201104, end: 20110831
  2. MULTIVITAMIN [Concomitant]
     Dosage: DAILY
     Route: 048
  3. VITAMIN D [Concomitant]
     Dosage: 2000 INTERNATIONAL UNITS DAILY
  4. VITAMIN B12 [Concomitant]
     Dosage: 500 MCG DAILY
     Route: 048
  5. IRON [Concomitant]
     Dosage: 65 MG,DAILY
  6. VALACICLOVIR [Concomitant]
     Dosage: 500 MG, UNK
     Route: 048
  7. METRONIDAZOLE [Concomitant]
     Indication: VAGINAL DISCHARGE
     Dosage: 500 MG TWICE A DAY [TIMES] 7 DAYS
     Route: 048
  8. FLUCONAZOLE [Concomitant]
     Indication: VAGINAL DISCHARGE
     Dosage: 150 MG TWICE A DAY [TIMES] 7 DAYS
     Route: 048
     Dates: start: 20110801

REACTIONS (2)
  - Pulmonary embolism [None]
  - Injury [None]
